FAERS Safety Report 9723016 (Version 1)
Quarter: 2013Q4

REPORT INFORMATION
  Report Type: Spontaneous
  Country: US (occurrence: None)
  Receive Date: 20131127
  Receipt Date: 20131127
  Transmission Date: 20140711
  Serious: No
  Sender: FDA-Public Use
  Company Number: None

PATIENT
  Age: 53 Year
  Sex: Female
  Weight: 68.04 kg

DRUGS (1)
  1. SUMATRIPTAN [Suspect]
     Indication: MIGRAINE
     Dosage: 1 TO 2 TABLETS TWICE DAILY TAKEN BY MOUTH
     Dates: start: 20131125, end: 20131125

REACTIONS (3)
  - Throat tightness [None]
  - Paraesthesia oral [None]
  - Swollen tongue [None]
